FAERS Safety Report 5341376-0 (Version None)
Quarter: 2007Q2

REPORT INFORMATION
  Report Type: 
  Country: None (occurrence: None)
  Receive Date: 20070530
  Receipt Date: 20070517
  Transmission Date: 20071010
  Serious: Yes (Death, Hospitalization)
  Sender: FDA-Public Use
  Company Number: M7001-00002-SPO-GB

PATIENT
  Age: 78 Year
  Sex: Female

DRUGS (1)
  1. TARGRETIN [Suspect]
     Indication: LYMPHOMA
     Dosage: ORAL
     Route: 048

REACTIONS (4)
  - HYPERLIPIDAEMIA [None]
  - HYPOTHYROIDISM [None]
  - LOWER RESPIRATORY TRACT INFECTION [None]
  - RESPIRATORY FAILURE [None]
